FAERS Safety Report 5402170-5 (Version None)
Quarter: 2007Q3

REPORT INFORMATION
  Report Type: 
  Country: None (occurrence: None)
  Receive Date: 20070730
  Receipt Date: 20070723
  Transmission Date: 20080115
  Serious: Yes (Hospitalization)
  Sender: FDA-Public Use
  Company Number: 163-21880-07061427

PATIENT
  Age: 86 Year
  Sex: Female
  Weight: 53.978 kg

DRUGS (9)
  1. REVLIMID [Suspect]
     Indication: MYELODYSPLASTIC SYNDROME
     Dosage: 5 MG, 1 IN 1 D, ORAL
     Route: 048
     Dates: start: 20070511, end: 20070501
  2. ASPIRIN [Concomitant]
  3. PRBC (RED BLOOD CELLS, CONCENTRATED) [Concomitant]
  4. ATENOLOL [Concomitant]
  5. FLEXERIL [Concomitant]
  6. EXJADE [Concomitant]
  7. GLUCOPHAGE [Concomitant]
  8. ACE INHIBITOR (ACE INHIBITOR NOS) [Concomitant]
  9. DARBEPOETIN (DARBEPOETIN ALFA) [Concomitant]

REACTIONS (8)
  - BLOOD BICARBONATE DECREASED [None]
  - BLOOD CREATINE INCREASED [None]
  - BLOOD SODIUM DECREASED [None]
  - BLOOD UREA INCREASED [None]
  - FULL BLOOD COUNT DECREASED [None]
  - HAEMATOCRIT DECREASED [None]
  - HAEMOGLOBIN DECREASED [None]
  - TENDONITIS [None]
